FAERS Safety Report 21323311 (Version 1)
Quarter: 2022Q3

REPORT INFORMATION
  Report Type: Spontaneous
  Country: US (occurrence: None)
  Receive Date: 20220910
  Receipt Date: 20220910
  Transmission Date: 20221027
  Serious: Yes (Hospitalization, Disabling, Other)
  Sender: FDA-Public Use
  Company Number: None

PATIENT
  Age: 46 Year
  Sex: Female
  Weight: 97 kg

DRUGS (7)
  1. ANAKINRA [Suspect]
     Active Substance: ANAKINRA
     Indication: Chronic infantile neurological cutaneous and articular syndrome
     Dosage: FREQUENCY : DAILY;?
     Route: 058
  2. ACETAZOLAMIDE [Concomitant]
     Active Substance: ACETAZOLAMIDE
     Dates: start: 20060401
  3. ROSUVASTATIN [Concomitant]
     Active Substance: ROSUVASTATIN
  4. MELATONIN [Concomitant]
     Active Substance: MELATONIN
  5. Mamentin [Concomitant]
  6. NORTRIPTYLINE [Concomitant]
     Active Substance: NORTRIPTYLINE
  7. CALCIUM CARBONATE [Concomitant]
     Active Substance: CALCIUM CARBONATE

REACTIONS (9)
  - Iatrogenic injury [None]
  - Amyloidosis [None]
  - Injection site nodule [None]
  - Fungal skin infection [None]
  - Oedema peripheral [None]
  - Proteinuria [None]
  - Gastrointestinal wall thickening [None]
  - Therapy interrupted [None]
  - Abdominal pain [None]

NARRATIVE: CASE EVENT DATE: 20220711
